FAERS Safety Report 8377417-6 (Version None)
Quarter: 2012Q2

REPORT INFORMATION
  Report Type: 
  Country: None (occurrence: None)
  Receive Date: 20120522
  Receipt Date: 20120517
  Transmission Date: 20120825
  Serious: Yes (Hospitalization)
  Sender: FDA-Public Use
  Company Number: CA-ROCHE-786086

PATIENT
  Sex: Male
  Weight: 78 kg

DRUGS (16)
  1. OXALIPLATIN [Suspect]
     Indication: RECTAL CANCER
     Dosage: DOSE FORM: VIAL
     Route: 042
  2. OXALIPLATIN [Suspect]
     Route: 042
  3. DEXAMETHASONE [Concomitant]
     Dosage: 1 TABLET PER CHEMOTHERAPY
     Route: 048
  4. IBUPROFEN (ADVIL) [Concomitant]
     Dosage: 1-2 TABLETS OD
     Route: 048
     Dates: start: 20110401, end: 20110515
  5. IRINOTECAN HCL [Suspect]
     Indication: RECTAL CANCER
     Dosage: CYCLE 2 DELAYED FOR 1 WEEK. DOSE FORM :VIAL
     Route: 042
  6. METFORMIN HCL [Concomitant]
     Dosage: BID
     Route: 048
  7. ALBUTEROL [Concomitant]
     Dosage: 2 PUFFS OD
  8. XELODA [Suspect]
     Indication: RECTAL CANCER
     Dosage: BID, DAY 2 AND 15 - ON 15 MAY AM DOSE ONLY
     Route: 048
     Dates: start: 20110514, end: 20110515
  9. TYLENOL [Concomitant]
     Indication: ARTHRITIS
     Dosage: 1-2 TABLETS OD
     Route: 048
     Dates: start: 20110401, end: 20110515
  10. LACTULOSE [Concomitant]
     Dosage: 15 ML (10 GM) OD
  11. HYDROMORPHONE HCL [Concomitant]
     Route: 048
     Dates: start: 20110509, end: 20110515
  12. XELODA [Suspect]
     Dosage: CYCLE 2 BID, DAY 2 AND 15
     Route: 048
  13. IRINOTECAN HCL [Suspect]
     Route: 042
  14. DILAUDID [Concomitant]
     Dosage: PER 2 HOURS
     Route: 048
     Dates: start: 20110509, end: 20110515
  15. ZOFRAN [Concomitant]
     Dosage: BIDX3 DAYS EACH CYCLE
     Route: 048
  16. METOCLOPRAMIDE [Concomitant]
     Dosage: 1 TABLET PER CHEMOTHERAPY
     Route: 048

REACTIONS (1)
  - PANCREATITIS ACUTE [None]
